FAERS Safety Report 9336870 (Version 1)
Quarter: 2013Q2

REPORT INFORMATION
  Report Type: Spontaneous
  Country: US (occurrence: US)
  Receive Date: 20130607
  Receipt Date: 20130607
  Transmission Date: 20140414
  Serious: Yes (Hospitalization)
  Sender: FDA-Public Use
  Company Number: US-PFIZER INC-2013170461

PATIENT
  Age: 75 Year
  Sex: Male

DRUGS (12)
  1. DETROL LA [Suspect]
     Dosage: 4 MG, 1X/DAY
     Route: 048
  2. GLUCOTROL [Suspect]
     Dosage: 10 MG, 2X/DAY (5 MG 2 TABS TWICE A DAY)
     Route: 048
  3. COUMADIN [Concomitant]
     Dosage: 5 MG, TAKE 1.5 TABS DAILY, EXCEPT 5 MG ON WEDNSEDAY
     Route: 048
  4. ULTRAM [Concomitant]
     Indication: PAIN
     Dosage: 50 MG, AS NEEDED EVERY 12 HOURS
     Route: 048
  5. TRICOR [Concomitant]
     Dosage: 145 MG, 1X/DAY
     Route: 048
  6. LANTUS [Concomitant]
     Indication: TYPE 2 DIABETES MELLITUS
     Dosage: 100 IU/ML, (20 UNITS AT BEDTIME)
     Route: 058
  7. LASIX [Concomitant]
     Dosage: 20 MG, 1X/DAY
     Route: 048
  8. POTASSIUM CHLORIDE [Concomitant]
     Dosage: 10 MEQ, 3X/DAY
     Route: 048
  9. ZOCOR [Concomitant]
     Dosage: 20 MG, 1X/DAY (EVERY EVENING)
     Route: 048
  10. CATAPRES [Concomitant]
     Dosage: 0.2 MG, 1X/DAY
     Route: 048
  11. LOSARTAN POTASSIUM W/HYDROCHLOROTHIAZIDE [Concomitant]
     Dosage: LOSARTAN POTASSIUM 100 MG/HCTZ 25 MG 1X/DAY
     Route: 048
  12. GLUCOPHAGE [Concomitant]
     Dosage: 1000 MG, 2X/DAY
     Route: 048

REACTIONS (1)
  - Joint injury [Unknown]
